FAERS Safety Report 9859770 (Version 5)
Quarter: 2014Q2

REPORT INFORMATION
  Report Type: Report from Study
  Country: US (occurrence: US)
  Receive Date: 20140131
  Receipt Date: 20140406
  Transmission Date: 20141212
  Serious: Yes (Death, Life-Threatening, Hospitalization)
  Sender: FDA-Public Use
  Company Number: US-BRISTOL-MYERS SQUIBB COMPANY-20117131

PATIENT
  Age: 75 Year
  Sex: Male
  Weight: 96.14 kg

DRUGS (9)
  1. BYDUREON [Suspect]
     Indication: TYPE 2 DIABETES MELLITUS
     Dosage: SECOND START DATE OF 03-JUL-2013
     Dates: start: 20120222
  2. BLINDED: PLACEBO [Suspect]
     Indication: TYPE 2 DIABETES MELLITUS
     Dosage: SECOND START DATE OF 03-JUL-2013
     Dates: start: 20120222
  3. SPIRONOLACTONE [Concomitant]
  4. INSULIN [Concomitant]
  5. METOPROLOL [Concomitant]
  6. LASIX [Concomitant]
  7. MIDODRINE HCL [Concomitant]
  8. VITAMIN D [Concomitant]
  9. RIFAXIMIN [Concomitant]

REACTIONS (2)
  - Hepatic cirrhosis [Fatal]
  - Gastrointestinal haemorrhage [Not Recovered/Not Resolved]
